FAERS Safety Report 7544564-8 (Version None)
Quarter: 2011Q2

REPORT INFORMATION
  Report Type: 
  Country: None (occurrence: None)
  Receive Date: 20110613
  Receipt Date: 20110608
  Transmission Date: 20111010
  Serious: Yes (Death, Hospitalization)
  Sender: FDA-Public Use
  Company Number: PL-BRISTOL-MYERS SQUIBB COMPANY-14916811

PATIENT
  Age: 51 Year
  Sex: Male

DRUGS (5)
  1. FOLIC ACID [Concomitant]
     Dates: start: 19970101, end: 20091218
  2. VITAMIN B6 [Concomitant]
     Dates: start: 20030101, end: 20091218
  3. ABATACEPT [Suspect]
     Indication: RHEUMATOID ARTHRITIS
     Dosage: ALSO GIVEN SC
     Route: 042
     Dates: start: 20090302, end: 20091207
  4. METHOTREXATE [Suspect]
     Indication: RHEUMATOID ARTHRITIS
  5. OMEPRAZOLE [Concomitant]
     Dates: start: 20030101, end: 20091218

REACTIONS (2)
  - BRONCHOPNEUMONIA [None]
  - CARDIAC FAILURE [None]
